FAERS Safety Report 8764790 (Version 1)
Quarter: 2012Q4

REPORT INFORMATION
  Report Type: 
  Country: BR (occurrence: BR)
  Receive Date: 20120831
  Receipt Date: 20120831
  Transmission Date: 20130627
  Serious: Yes (Death)
  Sender: FDA-Public Use
  Company Number: BR-ROCHE-1112037

PATIENT
  Sex: Female

DRUGS (2)
  1. XELODA [Suspect]
     Indication: COLORECTAL CANCER METASTATIC
     Route: 048
     Dates: start: 20090512, end: 20090621
  2. XELODA [Suspect]
     Dates: end: 20090621

REACTIONS (1)
  - Death [Fatal]
